FAERS Safety Report 7925851-8 (Version None)
Quarter: 2011Q4

REPORT INFORMATION
  Report Type: 
  Country: None (occurrence: None)
  Receive Date: 20111118
  Receipt Date: 20110413
  Transmission Date: 20120403
  Serious: No
  Sender: FDA-Public Use
  Company Number: US-AMGEN-USASP2011019709

PATIENT
  Age: 63 Year
  Sex: Female

DRUGS (3)
  1. ANTIBIOTICS [Concomitant]
  2. METHOTREXATE [Concomitant]
     Dates: start: 20030101
  3. ENBREL [Suspect]
     Indication: RHEUMATOID ARTHRITIS
     Dosage: 50 MG, QWK
     Dates: start: 20030101

REACTIONS (6)
  - BRONCHITIS [None]
  - HYPOTENSION [None]
  - HEART RATE DECREASED [None]
  - INCREASED TENDENCY TO BRUISE [None]
  - CONTUSION [None]
  - ASTHENIA [None]
